FAERS Safety Report 11193346 (Version 1)
Quarter: 2015Q2

REPORT INFORMATION
  Report Type: Spontaneous
  Country: US (occurrence: None)
  Receive Date: 20150615
  Receipt Date: 20150615
  Transmission Date: 20150821
  Serious: Yes (Disabling)
  Sender: FDA-Public Use
  Company Number: None

PATIENT
  Age: 42 Year
  Sex: Male
  Weight: 99.79 kg

DRUGS (7)
  1. VIT B [Suspect]
     Active Substance: VITAMINS
  2. MAGNESIUM [Suspect]
     Active Substance: MAGNESIUM
  3. CIPROFLOXACIN. [Suspect]
     Active Substance: CIPROFLOXACIN
     Indication: PROSTATITIS
     Dosage: 500 MG, 56 PILLS, 2 TIMES A DAY, BY MOUTH
     Route: 048
     Dates: start: 201404, end: 20130504
  4. OMEGA-3 FISH OIL [Suspect]
     Active Substance: FISH OIL\OMEGA-3 FATTY ACIDS
  5. SUPPLEMENTS [Concomitant]
     Active Substance: UNSPECIFIED INGREDIENT
  6. VITAMINS [Concomitant]
     Active Substance: VITAMINS
  7. VITAMIN C [Suspect]
     Active Substance: ASCORBIC ACID

REACTIONS (12)
  - Insomnia [None]
  - Eye pain [None]
  - Confusional state [None]
  - Arthralgia [None]
  - Tinnitus [None]
  - Vision blurred [None]
  - Tendon pain [None]
  - Headache [None]
  - Feeling abnormal [None]
  - Diplopia [None]
  - Head discomfort [None]
  - Pain [None]

NARRATIVE: CASE EVENT DATE: 20130510
